FAERS Safety Report 6869347-3 (Version None)
Quarter: 2010Q3

REPORT INFORMATION
  Report Type: 
  Country: None (occurrence: None)
  Receive Date: 20100722
  Receipt Date: 20080724
  Transmission Date: 20110219
  Serious: No
  Sender: FDA-Public Use
  Company Number: US-PFIZER INC-2008062677

PATIENT
  Sex: Female
  Weight: 68.2 kg

DRUGS (5)
  1. CHANTIX [Suspect]
     Indication: SMOKING CESSATION THERAPY
     Dates: start: 20080701, end: 20080710
  2. INDERAL [Concomitant]
  3. PRILOSEC [Concomitant]
  4. CLIMARA [Concomitant]
     Route: 062
  5. LOTREL [Concomitant]

REACTIONS (3)
  - ABNORMAL DREAMS [None]
  - HEADACHE [None]
  - NAUSEA [None]
